FAERS Safety Report 11348489 (Version 2)
Quarter: 2018Q1

REPORT INFORMATION
  Report Type: Spontaneous
  Country: CA (occurrence: CA)
  Receive Date: 20150806
  Receipt Date: 20180215
  Transmission Date: 20180508
  Serious: Yes (Other)
  Sender: FDA-Public Use
  Company Number: CA-009507513-1507CAN014702

PATIENT
  Age: 42 Year
  Sex: Female

DRUGS (1)
  1. CELESTONE SOLUSPAN [Suspect]
     Active Substance: BETAMETHASONE ACETATE\BETAMETHASONE SODIUM PHOSPHATE
     Indication: IMMATURE RESPIRATORY SYSTEM
     Dosage: 12 MG, Q12H (12MG, 1 EVERY 12 HOURS)
     Route: 042
     Dates: start: 20150108, end: 20150109

REACTIONS (1)
  - Generalised erythema [Recovered/Resolved]

NARRATIVE: CASE EVENT DATE: 20150109
